FAERS Safety Report 15586751 (Version 2)
Quarter: 2022Q1

REPORT INFORMATION
  Report Type: Spontaneous
  Country: TN (occurrence: TN)
  Receive Date: 20181105
  Receipt Date: 20220104
  Transmission Date: 20220423
  Serious: Yes (Other)
  Sender: FDA-Public Use
  Company Number: TN-ABBVIE-18P-160-2538516-00

PATIENT
  Age: 2 Year
  Sex: Male

DRUGS (6)
  1. VALPROATE SODIUM [Interacting]
     Active Substance: VALPROATE SODIUM
     Indication: Encephalopathy
     Dosage: 33 MG PER KG
     Route: 065
     Dates: start: 201701, end: 201708
  2. VALPROATE SODIUM [Interacting]
     Active Substance: VALPROATE SODIUM
     Route: 065
     Dates: start: 201708, end: 201708
  3. VALPROATE SODIUM [Interacting]
     Active Substance: VALPROATE SODIUM
     Route: 065
     Dates: start: 201708, end: 201708
  4. VALPROATE SODIUM [Interacting]
     Active Substance: VALPROATE SODIUM
     Dosage: 66 MG/KG
     Route: 065
     Dates: start: 201708
  5. AUGMENTIN [Interacting]
     Active Substance: AMOXICILLIN\CLAVULANATE POTASSIUM
     Indication: Pneumonia
     Dosage: FOR 12 DAYS
     Route: 065
     Dates: start: 201708, end: 2017
  6. IMIPENEM [Interacting]
     Active Substance: IMIPENEM
     Indication: Pneumonia
     Route: 065
     Dates: start: 2017, end: 2017

REACTIONS (2)
  - Drug interaction [Recovered/Resolved]
  - Drug level decreased [Recovered/Resolved]
